FAERS Safety Report 7247450-6 (Version None)
Quarter: 2011Q1

REPORT INFORMATION
  Report Type: 
  Country: None (occurrence: None)
  Receive Date: 20110127
  Receipt Date: 20110124
  Transmission Date: 20110831
  Serious: Yes (Death, Other)
  Sender: FDA-Public Use
  Company Number: PHHY2011VE05535

PATIENT
  Sex: Male

DRUGS (2)
  1. IMMUNOSUPPRESSANTS [Concomitant]
  2. ACLASTA [Suspect]
     Indication: OSTEOPOROSIS
     Dosage: 5 MG,
     Route: 042
     Dates: start: 20100201

REACTIONS (2)
  - PNEUMONIA [None]
  - BRAIN NEOPLASM [None]
